FAERS Safety Report 11255271 (Version 3)
Quarter: 2015Q3

REPORT INFORMATION
  Report Type: Spontaneous
  Country: JP (occurrence: JP)
  Receive Date: 20150709
  Receipt Date: 20150824
  Transmission Date: 20151125
  Serious: Yes (Life-Threatening)
  Sender: FDA-Public Use
  Company Number: JP-ASTRAZENECA-2015SE66597

PATIENT
  Age: 50 Year
  Sex: Male

DRUGS (14)
  1. OMEPRAL [Concomitant]
     Active Substance: OMEPRAZOLE
     Route: 041
     Dates: start: 201506
  2. NEUTROGIN [Concomitant]
     Active Substance: LENOGRASTIM
     Route: 058
     Dates: start: 201506
  3. HUMAN SERUM ALBUMIN [Concomitant]
     Active Substance: ALBUMIN (HUMAN)
     Route: 041
     Dates: start: 20150701
  4. VANCOMYCIN [Suspect]
     Active Substance: VANCOMYCIN
     Route: 041
     Dates: start: 20150701, end: 20150703
  5. CRAVIT [Suspect]
     Active Substance: LEVOFLOXACIN
     Route: 041
     Dates: start: 20150701, end: 20150703
  6. ITRIZOLE [Suspect]
     Active Substance: ITRACONAZOLE
     Route: 048
     Dates: start: 20150616, end: 20150702
  7. PLATELETS [Concomitant]
     Active Substance: HUMAN PLATELET, ALLOGENIC
     Route: 041
     Dates: start: 201506, end: 20150702
  8. AMBISOME [Suspect]
     Active Substance: AMPHOTERICIN B
     Indication: FUNGAL INFECTION
     Route: 041
     Dates: start: 20150703, end: 20150705
  9. SOL-MELCORT [Concomitant]
     Active Substance: METHYLPREDNISOLONE SODIUM SUCCINATE
     Dates: start: 20150703
  10. MEROPEN [Suspect]
     Active Substance: MEROPENEM
     Route: 042
     Dates: start: 20150630, end: 20150703
  11. AMBISOME [Suspect]
     Active Substance: AMPHOTERICIN B
     Indication: FUNGAL INFECTION
     Route: 041
  12. ITRIZOLE [Suspect]
     Active Substance: ITRACONAZOLE
     Route: 048
     Dates: start: 201506, end: 20150705
  13. BAKTAR [Concomitant]
     Active Substance: SULFAMETHOXAZOLE\TRIMETHOPRIM
     Route: 048
     Dates: start: 20150616, end: 20150703
  14. CONCENTRATED HUMAN RED BLOOD CELLS [Concomitant]
     Route: 041
     Dates: start: 201506, end: 20150702

REACTIONS (3)
  - Cholestasis [Recovered/Resolved]
  - Drug-induced liver injury [Recovered/Resolved]
  - Blood bilirubin increased [Recovered/Resolved]

NARRATIVE: CASE EVENT DATE: 20150702
